FAERS Safety Report 8067693-1 (Version None)
Quarter: 2012Q1

REPORT INFORMATION
  Report Type: 
  Country: None (occurrence: None)
  Receive Date: 20120124
  Receipt Date: 20120119
  Transmission Date: 20120608
  Serious: Yes (Hospitalization)
  Sender: FDA-Public Use
  Company Number: FR-ASTRAZENECA-2012SE03805

PATIENT
  Age: 68 Year
  Sex: Female

DRUGS (3)
  1. QUETIAPINE FUMARATE [Suspect]
     Indication: BIPOLAR DISORDER
     Route: 048
     Dates: start: 20111101
  2. EFFEXOR [Concomitant]
     Route: 048
  3. LT03 [Concomitant]

REACTIONS (1)
  - VASCULAR PURPURA [None]
